FAERS Safety Report 9453767 (Version 3)
Quarter: 2013Q4

REPORT INFORMATION
  Report Type: Spontaneous
  Country: JP (occurrence: JP)
  Receive Date: 20130812
  Receipt Date: 20131010
  Transmission Date: 20140711
  Serious: Yes (Life-Threatening)
  Sender: FDA-Public Use
  Company Number: JP-CUBIST PHARMACEUTICAL, INC.-2013CBST000096

PATIENT
  Sex: 0

DRUGS (2)
  1. CUBICIN [Suspect]
     Indication: STAPHYLOCOCCAL INFECTION
     Dosage: 350 MG, QD
     Route: 041
     Dates: start: 20120406, end: 20120420
  2. FINIBAX [Concomitant]
     Indication: STAPHYLOCOCCAL INFECTION
     Dosage: 0.25 G, BID
     Route: 041
     Dates: start: 20120420, end: 20120422

REACTIONS (1)
  - Eosinophilic pneumonia acute [Recovered/Resolved]
